FAERS Safety Report 8073749-X (Version None)
Quarter: 2012Q1

REPORT INFORMATION
  Report Type: 
  Country: None (occurrence: None)
  Receive Date: 20120126
  Receipt Date: 20120125
  Transmission Date: 20120608
  Serious: Yes (Death)
  Sender: FDA-Public Use
  Company Number: US-B.I. PHARMACEUTICALS,INC./RIDGEFIELD-2011-EU-00163GD

PATIENT

DRUGS (1)
  1. CLONIDINE [Suspect]
     Route: 048

REACTIONS (1)
  - ACCIDENTAL DEATH [None]
